FAERS Safety Report 24712898 (Version 2)
Quarter: 2024Q4

REPORT INFORMATION
  Report Type: Spontaneous
  Country: SE (occurrence: SE)
  Receive Date: 20241209
  Receipt Date: 20241223
  Transmission Date: 20250115
  Serious: Yes (Other)
  Sender: Vantive US Healthcare
  Company Number: SE-VANTIVE-2024VAN021579

PATIENT
  Age: 87 Year
  Sex: Male

DRUGS (23)
  1. EXTRANEAL [Suspect]
     Active Substance: CALCIUM CHLORIDE\ICODEXTRIN\MAGNESIUM CHLORIDE\SODIUM CHLORIDE\SODIUM LACTATE
     Dosage: UNK
     Route: 033
     Dates: start: 20241021
  2. CALCIUM CL\DEXTROSE\MAGNESIUM CL\SODIUM BICAR\SODIUM CL\SODIUM LACT [Concomitant]
     Active Substance: CALCIUM CHLORIDE\DEXTROSE MONOHYDRATE\MAGNESIUM CHLORIDE\SODIUM BICARBONATE\SODIUM CHLORIDE\SODIUM L
     Dosage: UNK
     Route: 033
     Dates: start: 20240827, end: 20241107
  3. CALCIUM CL\DEXTROSE\MAGNESIUM CL\SODIUM BICAR\SODIUM CL\SODIUM LACT [Concomitant]
     Active Substance: CALCIUM CHLORIDE\DEXTROSE MONOHYDRATE\MAGNESIUM CHLORIDE\SODIUM BICARBONATE\SODIUM CHLORIDE\SODIUM L
     Dosage: 2000X1-4TV
     Route: 033
     Dates: start: 20240906, end: 20241119
  4. LINAGLIPTIN [Concomitant]
     Active Substance: LINAGLIPTIN
     Dosage: 1X1 TV
     Route: 065
     Dates: start: 20190214, end: 20241118
  5. Betolvex [Concomitant]
     Dosage: 1KI20TV
     Route: 065
     Dates: start: 20240213
  6. PANTOPRAZOLE [Concomitant]
     Active Substance: PANTOPRAZOLE
     Dosage: 1X1 TV
     Route: 065
     Dates: start: 20240217
  7. LOSARTAN POTASSIUM [Concomitant]
     Active Substance: LOSARTAN POTASSIUM
     Dosage: 2X1 TV
     Route: 065
     Dates: start: 20240214, end: 20241118
  8. IMDUR [Concomitant]
     Active Substance: ISOSORBIDE MONONITRATE
     Dosage: 3X1 TV
     Route: 065
     Dates: start: 20230121
  9. MOVICOL [Concomitant]
     Active Substance: POLYETHYLENE GLYCOL 3350\POTASSIUM CHLORIDE\SODIUM BICARBONATE\SODIUM CHLORIDE
     Dosage: 0,5-2X1TV
     Route: 065
     Dates: start: 20230129, end: 20241117
  10. ASPIRIN [Concomitant]
     Active Substance: ASPIRIN
     Dosage: 1KL20
     Route: 065
     Dates: start: 20230821
  11. KETOCONAZOLE [Concomitant]
     Active Substance: KETOCONAZOLE
     Dosage: UNK
     Route: 065
     Dates: start: 20220413, end: 20241119
  12. METOPROLOL SUCCINATE [Concomitant]
     Active Substance: METOPROLOL SUCCINATE
     Dosage: 1,5KL8+1,5KL20TV
     Route: 065
     Dates: start: 20240213, end: 20241111
  13. ARANESP [Concomitant]
     Active Substance: DARBEPOETIN ALFA
     Dosage: 1 VAR7DTV
     Route: 065
     Dates: start: 20230330, end: 20241107
  14. ACETAMINOPHEN [Concomitant]
     Active Substance: ACETAMINOPHEN
     Dosage: 1 TABLET VB MAX 3/D TV
     Route: 065
     Dates: start: 20180903, end: 20241109
  15. Folacin [Concomitant]
     Dosage: 1KL20TV
     Route: 065
     Dates: start: 20240213
  16. ATORVASTATIN [Concomitant]
     Active Substance: ATORVASTATIN
     Dosage: 1KL20TV
     Route: 065
     Dates: start: 20240213
  17. Furix [Concomitant]
     Dosage: 1X1 TV
     Route: 065
     Dates: start: 20210831, end: 20241113
  18. EZETIMIBE [Concomitant]
     Active Substance: EZETIMIBE
     Dosage: 1X1 TV
     Route: 065
     Dates: start: 20230824, end: 20241118
  19. BETAMETHASONE [Concomitant]
     Active Substance: BETAMETHASONE
     Dosage: UNK
     Route: 065
     Dates: start: 20210215, end: 20241119
  20. CLOPIDOGREL [Concomitant]
     Active Substance: CLOPIDOGREL BISULFATE
     Dosage: 1X1I1A
     Route: 065
     Dates: start: 20240217
  21. LEVOTHYROXINE SODIUM [Concomitant]
     Active Substance: LEVOTHYROXINE SODIUM
     Dosage: 1X1 TV
     Route: 065
     Dates: start: 20171017
  22. NITROLINGUAL [Concomitant]
     Active Substance: NITROGLYCERIN
     Dosage: 1-2VBTV
     Route: 065
     Dates: start: 20171016
  23. SODIUM CARBONATE [Suspect]
     Active Substance: SODIUM CARBONATE
     Dosage: 1X3 TV
     Route: 065
     Dates: start: 20240403, end: 20241114

REACTIONS (1)
  - Leukopenia [Recovered/Resolved]

NARRATIVE: CASE EVENT DATE: 20241106
